FAERS Safety Report 5232063-8 (Version None)
Quarter: 2007Q1

REPORT INFORMATION
  Report Type: 
  Country: None (occurrence: None)
  Receive Date: 20070205
  Receipt Date: 20070125
  Transmission Date: 20070707
  Serious: Yes (Other)
  Sender: FDA-Public Use
  Company Number: CHNY2007CA00652

PATIENT
  Age: 55 Year
  Sex: Male
  Weight: 97.5 kg

DRUGS (1)
  1. HABITROL [Suspect]
     Indication: SMOKING CESSATION THERAPY
     Dosage: 21 MG, QD, TRANSDERMAL
     Route: 062
     Dates: start: 20070117, end: 20070125

REACTIONS (8)
  - ABDOMINAL PAIN [None]
  - ABNORMAL DREAMS [None]
  - AGGRESSION [None]
  - COLD SWEAT [None]
  - CONSTIPATION [None]
  - ERECTILE DYSFUNCTION [None]
  - FATIGUE [None]
  - STOMACH DISCOMFORT [None]
